FAERS Safety Report 7331721 (Version 4)
Quarter: 2013Q4

REPORT INFORMATION
  Report Type: Spontaneous
  Country: US (occurrence: US)
  Receive Date: 20100325
  Receipt Date: 20131122
  Transmission Date: 20140711
  Serious: Yes (Hospitalization, Other)
  Sender: FDA-Public Use
  Company Number: US-ROCHE-649886

PATIENT
  Age: 18 Year
  Sex: Male
  Weight: 83.9 kg

DRUGS (1)
  1. ACCUTANE [Suspect]
     Indication: ACNE
     Route: 048
     Dates: start: 19980617, end: 19981130

REACTIONS (10)
  - Anal abscess [Unknown]
  - Colitis ulcerative [Unknown]
  - Inflammatory bowel disease [Unknown]
  - Crohn^s disease [Unknown]
  - Anal fistula [Unknown]
  - Anal fistula [Unknown]
  - Large intestinal stenosis [Unknown]
  - Anal fistula [Unknown]
  - Depression [Unknown]
  - Large intestine polyp [Unknown]
